FAERS Safety Report 4985524-0 (Version None)
Quarter: 2006Q2

REPORT INFORMATION
  Report Type: 
  Country: None (occurrence: None)
  Receive Date: 20060428
  Receipt Date: 20050908
  Transmission Date: 20061013
  Serious: No
  Sender: FDA-Public Use
  Company Number: US-GLAXOSMITHKLINE-A0573433A

PATIENT
  Age: 51 Year
  Sex: Male

DRUGS (1)
  1. CUTIVATE [Suspect]
     Dates: end: 20050906

REACTIONS (2)
  - DRY SKIN [None]
  - ERYTHEMA [None]
